FAERS Safety Report 9652509 (Version 2)
Quarter: 2013Q4

REPORT INFORMATION
  Report Type: Spontaneous
  Country: US (occurrence: US)
  Receive Date: 20131029
  Receipt Date: 20131105
  Transmission Date: 20140711
  Serious: No
  Sender: FDA-Public Use
  Company Number: US-PFIZER INC-2013305579

PATIENT
  Age: 73 Year
  Sex: Male
  Weight: 109 kg

DRUGS (12)
  1. SIMVASTATIN [Suspect]
     Indication: BLOOD CHOLESTEROL INCREASED
     Dosage: 20 MG, DAILY
     Dates: start: 201303
  2. CHOLECALCIFEROL [Suspect]
     Indication: VITAMIN SUPPLEMENTATION
     Dosage: 2000 IU, DAILY
  3. CLOPIDOGREL [Suspect]
     Indication: CARDIAC DISORDER
     Dosage: 75 MG, DAILY
  4. GLIBENCLAMIDE [Suspect]
     Indication: DIABETES MELLITUS
     Dosage: 5 MG, DAILY
  5. METFORMIN HCL [Suspect]
     Indication: DIABETES MELLITUS
     Dosage: 750 MG, 2X/DAY
  6. OCUVITE [Suspect]
     Indication: EYE DISORDER
     Dosage: DAILY
  7. BENAZEPRIL HYDROCHLORIDE [Suspect]
     Indication: HYPERTENSION
     Dosage: 40 MG, DAILY
  8. BYSTOLIC [Suspect]
     Indication: CARDIAC DISORDER
     Dosage: 20 MG, DAILY
  9. CLONIDINE [Suspect]
     Indication: HYPERTENSION
     Dosage: 0.3 MG, 2X/DAY
  10. BENADRYL [Suspect]
     Indication: ANXIETY
     Dosage: UNK
  11. BIOTIN [Suspect]
     Indication: HAIR DISORDER
     Dosage: UNK
  12. ASPIRIN [Suspect]
     Dosage: 81 MG, DAILY

REACTIONS (7)
  - Hypovitaminosis [Not Recovered/Not Resolved]
  - Fatigue [Not Recovered/Not Resolved]
  - Anxiety [Not Recovered/Not Resolved]
  - Periorbital oedema [Unknown]
  - Myalgia [Unknown]
  - Alopecia [Unknown]
  - High density lipoprotein decreased [Unknown]
